FAERS Safety Report 5565551-5 (Version None)
Quarter: 2007Q4

REPORT INFORMATION
  Report Type: 
  Country: None (occurrence: None)
  Receive Date: 20071218
  Receipt Date: 20050817
  Transmission Date: 20080405
  Serious: Yes (Death, Hospitalization)
  Sender: FDA-Public Use
  Company Number: FR-ROCHE-414774

PATIENT
  Age: 68 Year
  Sex: Male

DRUGS (1)
  1. CYMEVAN [Suspect]
     Route: 042
     Dates: start: 20010301

REACTIONS (5)
  - CARDIOVASCULAR DISORDER [None]
  - NEUTROPENIA [None]
  - RENAL FAILURE [None]
  - RESPIRATORY DISTRESS [None]
  - SEPSIS [None]
